FAERS Safety Report 6296282-4 (Version None)
Quarter: 2009Q3

REPORT INFORMATION
  Report Type: 
  Country: None (occurrence: None)
  Receive Date: 20090804
  Receipt Date: 20090720
  Transmission Date: 20100115
  Serious: Yes (Hospitalization)
  Sender: FDA-Public Use
  Company Number: FR-NAPPMUNDI-GBR-2009-0005405

PATIENT
  Sex: Female

DRUGS (10)
  1. SEVREDOL TABLETS [Suspect]
     Indication: SCIATICA
     Dosage: UNK
     Route: 048
     Dates: end: 20090514
  2. MORPHINE SULFATE [Suspect]
     Indication: SCIATICA
     Dosage: UNK
     Route: 048
     Dates: end: 20090514
  3. ATACAND [Concomitant]
     Dosage: 16 MG, UNK
  4. TEMGESIC                           /00444001/ [Concomitant]
     Dosage: 0.2 MG, UNK
     Route: 060
  5. LAROXYL [Concomitant]
     Dosage: 50 MG, UNK
  6. ALPRAZOLAM [Concomitant]
  7. TERCIAN                            /00759301/ [Concomitant]
  8. MEPRONIZINE                        /00789201/ [Concomitant]
  9. MYOLASTAN [Concomitant]
  10. DEBRIDAT                           /00465202/ [Concomitant]

REACTIONS (5)
  - FALL [None]
  - LOSS OF CONSCIOUSNESS [None]
  - RENAL FAILURE ACUTE [None]
  - RHABDOMYOLYSIS [None]
  - URTICARIA [None]
